FAERS Safety Report 20546619 (Version 1)
Quarter: 2022Q1

REPORT INFORMATION
  Report Type: Spontaneous
  Country: FR (occurrence: FR)
  Receive Date: 20220303
  Receipt Date: 20220303
  Transmission Date: 20220423
  Serious: Yes (Other)
  Sender: FDA-Public Use
  Company Number: None

PATIENT
  Age: 27 Year
  Sex: Male

DRUGS (4)
  1. PREGABALIN [Suspect]
     Active Substance: PREGABALIN
     Dosage: 1500 MG, 1X/DAY
     Route: 048
     Dates: start: 2017
  2. RIVOTRIL [Suspect]
     Active Substance: CLONAZEPAM
     Dosage: 5 MG, 1X/DAY
     Route: 048
     Dates: start: 2017
  3. CANNABIS SATIVA SUBSP. INDICA TOP [Suspect]
     Active Substance: CANNABIS SATIVA SUBSP. INDICA TOP
     Dosage: UNK, DAILY (6 TO 7 JOINTS PER DAY (DECLARATIVE STATEMENT))
  4. DIAZEPAM [Suspect]
     Active Substance: DIAZEPAM
     Dosage: 5 DF, 1X/DAY
     Route: 048
     Dates: start: 2017

REACTIONS (1)
  - Drug abuse [Unknown]
